FAERS Safety Report 6616179-7 (Version None)
Quarter: 2010Q1

REPORT INFORMATION
  Report Type: 
  Country: None (occurrence: None)
  Receive Date: 20100305
  Receipt Date: 20100224
  Transmission Date: 20100710
  Serious: Yes (Other)
  Sender: FDA-Public Use
  Company Number: IT-WYE-H13869410

PATIENT
  Sex: Male

DRUGS (2)
  1. CORDARONE [Suspect]
     Indication: DRUG USE FOR UNKNOWN INDICATION
     Route: 048
     Dates: end: 20100201
  2. ASPIRIN [Concomitant]
     Dosage: UNKNOWN
     Route: 065

REACTIONS (1)
  - PULMONARY OEDEMA [None]
